FAERS Safety Report 14458658 (Version 2)
Quarter: 2018Q1

REPORT INFORMATION
  Report Type: Spontaneous
  Country: US (occurrence: US)
  Receive Date: 20180130
  Receipt Date: 20180228
  Transmission Date: 20180509
  Serious: Yes (Hospitalization, Other)
  Sender: FDA-Public Use
  Company Number: US-DSJP-DSU-2017-140893

PATIENT

DRUGS (4)
  1. BENICAR [Suspect]
     Active Substance: OLMESARTAN MEDOXOMIL
     Dosage: 40 MG HALF TABLET , QD
     Route: 048
     Dates: start: 20170316, end: 20170710
  2. BENICAR [Suspect]
     Active Substance: OLMESARTAN MEDOXOMIL
     Dosage: 10 MG, QD
     Route: 048
     Dates: start: 20150417, end: 20150421
  3. BENICAR [Suspect]
     Active Substance: OLMESARTAN MEDOXOMIL
     Indication: HYPERTENSION
     Dosage: 20 MG, QD
     Dates: start: 20141120, end: 20150421
  4. BENICAR [Suspect]
     Active Substance: OLMESARTAN MEDOXOMIL
     Dosage: 40 MG, QD
     Route: 048
     Dates: start: 20141120, end: 20160901

REACTIONS (13)
  - Sprue-like enteropathy [Recovering/Resolving]
  - Haemorrhoids [Recovered/Resolved]
  - Haematemesis [Recovered/Resolved]
  - Intestinal resection [Recovered/Resolved]
  - Coeliac disease [Recovered/Resolved]
  - Acute kidney injury [Recovered/Resolved]
  - Inflammatory bowel disease [Recovered/Resolved]
  - Large intestine polyp [Recovered/Resolved]
  - Pelvic floor dyssynergia [Recovered/Resolved]
  - Gastrooesophageal reflux disease [Unknown]
  - Drug administration error [Unknown]
  - Hiatus hernia [Unknown]
  - Gastric polyps [Unknown]

NARRATIVE: CASE EVENT DATE: 20140313
